FAERS Safety Report 8483315-X (Version None)
Quarter: 2012Q3

REPORT INFORMATION
  Report Type: 
  Country: None (occurrence: None)
  Receive Date: 20120702
  Receipt Date: 20120627
  Transmission Date: 20120928
  Serious: Yes (Life-Threatening, Other)
  Sender: FDA-Public Use
  Company Number: TW-BAYER-2012-064658

PATIENT
  Age: 65 Year
  Sex: Female

DRUGS (6)
  1. ULTRAVIST 370 [Suspect]
     Indication: ANGIOGRAM
     Dosage: 12 ML, ONCE
  2. HYPERTONIC SOLUTIONS [Concomitant]
  3. ULTRAVIST 370 [Suspect]
     Dosage: 60 ML, ONCE
  4. SODIUM CHLORIDE [Concomitant]
     Dosage: 12 ML, ONCE
  5. SODIUM CHLORIDE [Concomitant]
     Dosage: 40 ML, ONCE
  6. ISOTONIC SOLUTIONS [Concomitant]
     Indication: VENOUS PRESSURE ABNORMAL

REACTIONS (5)
  - INTRACRANIAL PRESSURE INCREASED [None]
  - EXTRAVASATION [None]
  - NEUROLOGICAL DECOMPENSATION [None]
  - ANEURYSM RUPTURED [None]
  - SUBARACHNOID HAEMORRHAGE [None]
